FAERS Safety Report 9042087 (Version 1)
Quarter: 2013Q1

REPORT INFORMATION
  Report Type: Report from Study
  Country: US (occurrence: US)
  Receive Date: 20130129
  Receipt Date: 20130129
  Transmission Date: 20140127
  Serious: No
  Sender: FDA-Public Use
  Company Number: US-ABBOTT-12P-163-0905231-00

PATIENT
  Sex: Male
  Weight: 83.08 kg

DRUGS (12)
  1. HUMIRA 40 MG/ 0.8 ML PRE-FILLED SYRINGE [Suspect]
     Indication: CROHN^S DISEASE
     Route: 058
     Dates: start: 201110, end: 201110
  2. HUMIRA 40 MG/ 0.8 ML PRE-FILLED SYRINGE [Suspect]
     Dosage: PENS
     Route: 058
     Dates: start: 20120210, end: 20120210
  3. HUMIRA 40 MG/ 0.8 ML PRE-FILLED SYRINGE [Suspect]
     Dosage: PENS
     Route: 058
     Dates: end: 201110
  4. HUMIRA 40 MG/0.8 ML PEN [Suspect]
     Indication: CROHN^S DISEASE
     Dates: end: 201110
  5. HUMIRA 40 MG/0.8 ML PEN [Suspect]
     Route: 058
     Dates: start: 20120210, end: 20120210
  6. PENTASA [Concomitant]
     Indication: CROHN^S DISEASE
  7. PROTONIX [Concomitant]
     Indication: GASTRIC ULCER
  8. HYDROCODONE [Concomitant]
     Indication: CROHN^S DISEASE
  9. LEXAPRO [Concomitant]
     Indication: DEPRESSION
  10. LOMOTIL [Concomitant]
     Indication: CROHN^S DISEASE
  11. ENTOCORT [Concomitant]
     Indication: CROHN^S DISEASE
  12. PREDNISONE [Concomitant]
     Indication: INFLAMMATION

REACTIONS (9)
  - Lymphadenopathy [Recovered/Resolved]
  - Crohn^s disease [Not Recovered/Not Resolved]
  - Fistula [Not Recovered/Not Resolved]
  - Gastrointestinal inflammation [Not Recovered/Not Resolved]
  - Hypertension [Not Recovered/Not Resolved]
  - Hypovitaminosis [Not Recovered/Not Resolved]
  - Fatigue [Not Recovered/Not Resolved]
  - Asthenia [Not Recovered/Not Resolved]
  - Viral infection [Recovered/Resolved]
